FAERS Safety Report 10404535 (Version 1)
Quarter: 2014Q2

REPORT INFORMATION
  Report Type: Spontaneous
  Country: US (occurrence: None)
  Receive Date: 20140514
  Receipt Date: 20140514
  Transmission Date: 20141212
  Serious: Yes (Hospitalization)
  Sender: FDA-Public Use
  Company Number: 089815

PATIENT
  Age: 29 Year
  Sex: Female
  Weight: 65 kg

DRUGS (1)
  1. CIMZIA [Suspect]
     Dosage: (400MG;  FIRST DOSE LOADING; NO OF DOSES: 1 INTRAMUSCULAR?(TO 06/04/2013)
     Route: 030

REACTIONS (2)
  - Fatigue [None]
  - Abdominal pain [None]
